FAERS Safety Report 18436097 (Version 1)
Quarter: 2020Q4

REPORT INFORMATION
  Report Type: Report from Study
  Country: US (occurrence: US)
  Receive Date: 20201028
  Receipt Date: 20201028
  Transmission Date: 20210114
  Serious: No
  Sender: FDA-Public Use
  Company Number: US-AGIOS-2007US02051

PATIENT

DRUGS (2)
  1. TIBSOVO [Suspect]
     Active Substance: IVOSIDENIB
     Indication: ACUTE MYELOID LEUKAEMIA
     Dosage: 250 MILLIGRAM, 2 TABLETS (500 MG) DAILY
     Route: 048
     Dates: start: 20200624
  2. FLU VACCINE VII [Concomitant]
     Active Substance: INFLUENZA VIRUS VACCINE
     Indication: PROPHYLAXIS

REACTIONS (3)
  - Allergy to arthropod bite [Recovered/Resolved]
  - Lip swelling [Recovered/Resolved]
  - Muscle strain [Recovering/Resolving]

NARRATIVE: CASE EVENT DATE: 20201021
